FAERS Safety Report 5557075-6 (Version None)
Quarter: 2007Q4

REPORT INFORMATION
  Report Type: 
  Country: None (occurrence: None)
  Receive Date: 20071214
  Receipt Date: 20071210
  Transmission Date: 20080405
  Serious: Yes (Hospitalization)
  Sender: FDA-Public Use
  Company Number: JP-JNJFOC-20070905034

PATIENT
  Sex: Male
  Weight: 50.1 kg

DRUGS (17)
  1. INFLIXIMAB* [Suspect]
  2. INFLIXIMAB* [Suspect]
  3. INFLIXIMAB* [Suspect]
  4. INFLIXIMAB* [Suspect]
  5. INFLIXIMAB* [Suspect]
  6. INFLIXIMAB* [Suspect]
  7. INFLIXIMAB* [Suspect]
  8. INFLIXIMAB* [Suspect]
     Indication: PSORIATIC ARTHROPATHY
  9. NABOAL [Concomitant]
     Route: 048
  10. NABOAL [Concomitant]
     Indication: PSORIATIC ARTHROPATHY
     Route: 048
  11. PREDNISOLONE [Concomitant]
     Indication: PSORIATIC ARTHROPATHY
     Route: 048
  12. METHADERM [Concomitant]
     Indication: PSORIATIC ARTHROPATHY
     Route: 061
  13. DOVONEX [Concomitant]
     Indication: PSORIATIC ARTHROPATHY
     Route: 061
  14. ZANTAC [Concomitant]
     Indication: GASTRITIS PROPHYLAXIS
     Route: 048
  15. MUCOSTA [Concomitant]
     Indication: GASTRITIS PROPHYLAXIS
     Route: 048
  16. HYDROPHILIC [Concomitant]
     Indication: PSORIATIC ARTHROPATHY
     Route: 061
  17. PROPETO [Concomitant]
     Indication: PSORIATIC ARTHROPATHY
     Route: 061

REACTIONS (2)
  - PSORIATIC ARTHROPATHY [None]
  - UVEITIS [None]
